FAERS Safety Report 9265273 (Version 2)
Quarter: 2013Q3

REPORT INFORMATION
  Report Type: Report from Study
  Country: GB (occurrence: GB)
  Receive Date: 20130501
  Receipt Date: 20130701
  Transmission Date: 20140515
  Serious: Yes (Hospitalization)
  Sender: FDA-Public Use
  Company Number: GB-ROCHE-1220360

PATIENT
  Sex: Female
  Weight: 145 kg

DRUGS (2)
  1. TOCILIZUMAB [Suspect]
     Indication: RHEUMATOID ARTHRITIS
     Route: 065
     Dates: start: 20110331
  2. METHOTREXATE [Concomitant]

REACTIONS (2)
  - Haematemesis [Unknown]
  - Gastritis [Unknown]
